FAERS Safety Report 5902900-X (Version None)
Quarter: 2008Q3

REPORT INFORMATION
  Report Type: 
  Country: None (occurrence: None)
  Receive Date: 20080929
  Receipt Date: 20080929
  Transmission Date: 20090109
  Serious: Yes (Life-Threatening, Hospitalization)
  Sender: FDA-Public Use
  Company Number: None

PATIENT
  Sex: Female
  Weight: 56.6996 kg

DRUGS (5)
  1. DILANTIN [Suspect]
     Indication: CONVULSION
     Dates: start: 19881105, end: 19881221
  2. PHENOBARBITAL TAB [Suspect]
     Indication: CONVULSION
     Dates: start: 19881222, end: 19890114
  3. ADVIL [Concomitant]
  4. TYLENOL (CAPLET) [Concomitant]
  5. MOTRIN [Concomitant]

REACTIONS (23)
  - ABASIA [None]
  - BLISTER [None]
  - BURNING SENSATION [None]
  - CONDITION AGGRAVATED [None]
  - CONFUSIONAL STATE [None]
  - CONVULSION [None]
  - DIVORCED [None]
  - DRUG INEFFECTIVE [None]
  - ERYTHEMA [None]
  - GAIT DISTURBANCE [None]
  - GRAND MAL CONVULSION [None]
  - INSOMNIA [None]
  - LYMPHADENOPATHY [None]
  - OTORRHOEA [None]
  - PAIN OF SKIN [None]
  - PRURITUS [None]
  - PYREXIA [None]
  - RASH [None]
  - SKIN DISCOLOURATION [None]
  - SKIN EXFOLIATION [None]
  - STRESS [None]
  - SWELLING [None]
  - WISDOM TEETH REMOVAL [None]
